FAERS Safety Report 17761509 (Version 2)
Quarter: 2022Q3

REPORT INFORMATION
  Report Type: Spontaneous
  Country: FR (occurrence: FR)
  Receive Date: 20200508
  Receipt Date: 20220826
  Transmission Date: 20221026
  Serious: Yes (Other)
  Sender: FDA-Public Use
  Company Number: None

PATIENT
  Age: 69 Year
  Sex: Female
  Weight: 86 kg

DRUGS (5)
  1. PACLITAXEL [Suspect]
     Active Substance: PACLITAXEL
     Indication: Uterine cancer
     Dosage: 126 MILLIGRAM, CYCLE
     Route: 042
     Dates: start: 20200103
  2. PREDNISOLONE [Suspect]
     Active Substance: PREDNISOLONE
     Indication: Product used for unknown indication
     Dosage: 40 MILLIGRAM, CYCLE
     Route: 048
     Dates: start: 20200103
  3. CARBOPLATIN [Suspect]
     Active Substance: CARBOPLATIN
     Indication: Uterine cancer
     Dosage: 230 MILLIGRAM, CYCLE
     Route: 042
     Dates: start: 20200103, end: 20200117
  4. CETIRIZINE [Suspect]
     Active Substance: CETIRIZINE HYDROCHLORIDE
     Indication: Product used for unknown indication
     Dosage: 10 MILLIGRAM, CYCLE
     Route: 048
     Dates: start: 20200103
  5. CIMETIDINE [Suspect]
     Active Substance: CIMETIDINE
     Indication: Product used for unknown indication
     Dosage: 200 MILLIGRAM, CYCLE
     Route: 048
     Dates: start: 20200103

REACTIONS (3)
  - Anaphylactoid reaction [Recovered/Resolved]
  - Rash [Recovered/Resolved]
  - Pruritus [Recovered/Resolved]

NARRATIVE: CASE EVENT DATE: 20200103
